FAERS Safety Report 14081691 (Version 1)
Quarter: 2017Q4

REPORT INFORMATION
  Report Type: Spontaneous
  Country: US (occurrence: None)
  Receive Date: 20171012
  Receipt Date: 20171012
  Transmission Date: 20180321
  Serious: No
  Sender: FDA-Public Use
  Company Number: None

PATIENT
  Age: 44 Year
  Sex: Male
  Weight: 104.5 kg

DRUGS (1)
  1. BUPRENORPHINE/NALOXONE [Suspect]
     Active Substance: BUPRENORPHINE\NALOXONE
     Indication: DRUG DEPENDENCE
     Dosage: 8/2 EVERY DAY PO
     Route: 048
     Dates: start: 20160620, end: 20160705

REACTIONS (5)
  - Nausea [None]
  - Withdrawal syndrome [None]
  - Headache [None]
  - Dizziness [None]
  - Product substitution issue [None]

NARRATIVE: CASE EVENT DATE: 20160620
